FAERS Safety Report 19640053 (Version 1)
Quarter: 2021Q3

REPORT INFORMATION
  Report Type: Spontaneous
  Country: IN (occurrence: IN)
  Receive Date: 20210730
  Receipt Date: 20210730
  Transmission Date: 20211014
  Serious: Yes (Hospitalization)
  Sender: FDA-Public Use
  Company Number: IN-MYLANLABS-2021M1046145

PATIENT
  Age: 25 Year
  Sex: Female

DRUGS (1)
  1. BUPIVACAINE. [Suspect]
     Active Substance: BUPIVACAINE
     Indication: SPINAL ANAESTHESIA
     Dosage: 12 MILLIGRAM 25G QUINCKE NEEDLE IN A SINGLE PRICK, AT L3?L4 SPACE

REACTIONS (2)
  - Spinal epidural haematoma [Recovering/Resolving]
  - Maternal exposure during delivery [Recovering/Resolving]
